FAERS Safety Report 13646482 (Version 2)
Quarter: 2017Q3

REPORT INFORMATION
  Report Type: Spontaneous
  Country: US (occurrence: US)
  Receive Date: 20170613
  Receipt Date: 20170822
  Transmission Date: 20171127
  Serious: No
  Sender: FDA-Public Use
  Company Number: US-PFIZER INC-2017252471

PATIENT
  Age: 59 Year
  Sex: Female
  Weight: 78.2 kg

DRUGS (6)
  1. NIFEDICAL XL [Suspect]
     Active Substance: NIFEDIPINE
     Dosage: UNK
  2. PROCARDIA [Suspect]
     Active Substance: NIFEDIPINE
     Indication: ANGINA PECTORIS
     Dosage: 10 MG, UNK
     Dates: start: 2000, end: 2001
  3. PROCARDIA [Suspect]
     Active Substance: NIFEDIPINE
     Indication: ARRHYTHMIA
  4. PROCARDIA [Suspect]
     Active Substance: NIFEDIPINE
     Indication: FEELING ABNORMAL
  5. PROCARDIA [Suspect]
     Active Substance: NIFEDIPINE
     Indication: STRESS
  6. LASIX [Concomitant]
     Active Substance: FUROSEMIDE
     Dosage: UNK

REACTIONS (3)
  - Dyspnoea [Unknown]
  - Product use in unapproved indication [Unknown]
  - Hypertension [Unknown]

NARRATIVE: CASE EVENT DATE: 2000
